FAERS Safety Report 6384490-3 (Version None)
Quarter: 2009Q3

REPORT INFORMATION
  Report Type: 
  Country: None (occurrence: None)
  Receive Date: 20090929
  Receipt Date: 20090915
  Transmission Date: 20100115
  Serious: Yes (Hospitalization)
  Sender: FDA-Public Use
  Company Number: CLOF-1000606

PATIENT
  Age: 66 Year

DRUGS (11)
  1. EVOLTRA (CLOFARABINE) SOLUTION FOR INFUSION [Suspect]
     Indication: ACUTE MYELOID LEUKAEMIA
     Dosage: 42 MG, QDX5, INTRAVENOJS, 42 MG, QDX5, INTRAVENOUS
     Route: 042
     Dates: start: 20090311, end: 20090315
  2. EVOLTRA (CLOFARABINE) SOLUTION FOR INFUSION [Suspect]
     Indication: ACUTE MYELOID LEUKAEMIA
     Dosage: 42 MG, QDX5, INTRAVENOJS, 42 MG, QDX5, INTRAVENOUS
     Route: 042
     Dates: start: 20090428, end: 20090502
  3. ACICLOVIR (ACICLOVIR SODIUM) [Concomitant]
  4. GLICLAZIDE (GLICLAZIDE) [Concomitant]
  5. METFORMIN HCL [Concomitant]
  6. OMEPRAZOLE [Concomitant]
  7. AMLODIPINE [Concomitant]
  8. PARACETAMOL (PROMETHAZINE HYDROCHLORIDE) [Concomitant]
  9. OXYCONTIN [Concomitant]
  10. POSACONAZOLE [Concomitant]
  11. METOCLOPRAMIDE (METOCLOPRAMIDE HYDROCHLORIDE) [Concomitant]

REACTIONS (4)
  - HAEMATOCRIT DECREASED [None]
  - RED BLOOD CELL COUNT DECREASED [None]
  - THROMBOCYTOPENIA [None]
  - WHITE BLOOD CELL COUNT DECREASED [None]
